FAERS Safety Report 4446833-7 (Version None)
Quarter: 2004Q3

REPORT INFORMATION
  Report Type: 
  Country: None (occurrence: None)
  Receive Date: 20040908
  Receipt Date: 20040901
  Transmission Date: 20050211
  Serious: Yes (Other)
  Sender: FDA-Public Use
  Company Number: 2004231235US

PATIENT
  Sex: 0

DRUGS (1)
  1. CELEBREX [Suspect]

REACTIONS (1)
  - WHOLE BLOOD TRANSFUSION [None]
